APPROVED DRUG PRODUCT: PHENOXYBENZAMINE HYDROCHLORIDE
Active Ingredient: PHENOXYBENZAMINE HYDROCHLORIDE
Strength: 10MG
Dosage Form/Route: CAPSULE;ORAL
Application: A201050 | Product #001
Applicant: HIKMA PHARMACEUTICALS USA INC
Approved: Jul 16, 2012 | RLD: No | RS: No | Type: DISCN